FAERS Safety Report 22007179 (Version 1)
Quarter: 2023Q1

REPORT INFORMATION
  Report Type: Spontaneous
  Country: US (occurrence: US)
  Receive Date: 20230217
  Receipt Date: 20230217
  Transmission Date: 20230417
  Serious: Yes (Hospitalization)
  Sender: FDA-Public Use
  Company Number: US-drreddys-LIT/USA/23/0161201

PATIENT
  Age: 72 Year
  Sex: Male

DRUGS (4)
  1. DOBUTAMINE HYDROCHLORIDE [Suspect]
     Active Substance: DOBUTAMINE HYDROCHLORIDE
     Indication: Cardiac failure
     Dosage: 12.5 MICROG/KG/MIN
  2. NOREPINEPHRINE [Suspect]
     Active Substance: NOREPINEPHRINE
     Indication: Cardiac failure
     Dosage: 0.3 MICROG/KG/MIN
  3. EPINEPHRINE [Suspect]
     Active Substance: EPINEPHRINE
     Indication: Cardiac failure
     Dosage: 0.3 MICROG/KG/MIN
  4. VASOPRESSIN [Suspect]
     Active Substance: VASOPRESSIN
     Indication: Cardiac failure
     Dosage: 0.04 UNITS/MIN

REACTIONS (5)
  - Livedo reticularis [Unknown]
  - Peripheral coldness [Recovering/Resolving]
  - Skin discolouration [Recovering/Resolving]
  - Hypotension [Recovering/Resolving]
  - Drug ineffective [Unknown]
